FAERS Safety Report 14702363 (Version 2)
Quarter: 2018Q3

REPORT INFORMATION
  Report Type: Report from Study
  Country: GB (occurrence: GB)
  Receive Date: 20180401
  Receipt Date: 20180711
  Transmission Date: 20181010
  Serious: Yes (Other)
  Sender: FDA-Public Use
  Company Number: PHHY2018GB051619

PATIENT
  Sex: Female

DRUGS (1)
  1. ERELZI [Suspect]
     Active Substance: ETANERCEPT-SZZS
     Indication: PSORIASIS
     Dosage: 50 MG, QW
     Route: 065
     Dates: start: 201803

REACTIONS (3)
  - Tremor [Unknown]
  - Carpal tunnel syndrome [Unknown]
  - Incorrect dose administered [Unknown]
